FAERS Safety Report 8381417-X (Version None)
Quarter: 2012Q2

REPORT INFORMATION
  Report Type: 
  Country: None (occurrence: None)
  Receive Date: 20120523
  Receipt Date: 20120515
  Transmission Date: 20120825
  Serious: Yes (Hospitalization, Other)
  Sender: FDA-Public Use
  Company Number: US-ROCHE-731990

PATIENT
  Sex: Female
  Weight: 61.2 kg

DRUGS (6)
  1. DOXYCYCLINE [Concomitant]
     Indication: ACNE
     Route: 048
  2. ACCUTANE [Suspect]
     Route: 048
     Dates: start: 20030702, end: 20031201
  3. ACCUTANE [Suspect]
     Route: 048
     Dates: start: 20040112, end: 20040617
  4. ACCUTANE [Suspect]
     Indication: ACNE
     Route: 048
     Dates: start: 20010609, end: 20020301
  5. ACCUTANE [Suspect]
     Route: 048
     Dates: start: 20060614, end: 20060927
  6. ACCUTANE [Suspect]
     Route: 048
     Dates: start: 20040929, end: 20050701

REACTIONS (14)
  - IRRITABLE BOWEL SYNDROME [None]
  - INFLAMMATORY BOWEL DISEASE [None]
  - DEPRESSION [None]
  - DRY SKIN [None]
  - COLITIS ULCERATIVE [None]
  - COLONIC POLYP [None]
  - DEEP VEIN THROMBOSIS [None]
  - BLOOD CHOLESTEROL INCREASED [None]
  - HAEMORRHOIDS [None]
  - CROHN'S DISEASE [None]
  - MALABSORPTION [None]
  - INTESTINAL FISTULA [None]
  - LIP DRY [None]
  - BLOOD TRIGLYCERIDES INCREASED [None]
